FAERS Safety Report 5223694-X (Version None)
Quarter: 2007Q1

REPORT INFORMATION
  Report Type: 
  Country: None (occurrence: None)
  Receive Date: 20070125
  Receipt Date: 20070110
  Transmission Date: 20070707
  Serious: Yes (Hospitalization)
  Sender: FDA-Public Use
  Company Number: 6028953

PATIENT
  Age: 61 Year
  Sex: Male

DRUGS (2)
  1. CARDENSIEL 2.5 MG (TABLET) (BISOPROLOL FUMARATE) [Suspect]
     Indication: DRUG USE FOR UNKNOWN INDICATION
     Dosage: 2.5 MG, ORAL
     Route: 048
     Dates: start: 20061008
  2. RAMIPRIL [Suspect]
     Indication: DRUG USE FOR UNKNOWN INDICATION
     Dosage: 10 MG (10 MG, 1 D), ORAL
     Route: 048
     Dates: start: 20061008

REACTIONS (3)
  - ATRIAL FIBRILLATION [None]
  - SUPRAVENTRICULAR EXTRASYSTOLES [None]
  - VOGT-KOYANAGI-HARADA SYNDROME [None]
